FAERS Safety Report 26118762 (Version 1)
Quarter: 2025Q4

REPORT INFORMATION
  Report Type: Spontaneous
  Country: US (occurrence: US)
  Receive Date: 20251203
  Receipt Date: 20251203
  Transmission Date: 20260117
  Serious: No
  Sender: AMGEN
  Company Number: US-AMGEN-USASP2025237941

PATIENT
  Age: 59 Year
  Sex: Female

DRUGS (2)
  1. MVASI [Suspect]
     Active Substance: BEVACIZUMAB-AWWB
     Indication: Ovarian cancer
     Dosage: UNK (2X 400MG VIALS), DOSE ORDERED: 1000MG (2X 400MG VIALS, 2X 100MG VIALS)
     Route: 065
  2. MVASI [Suspect]
     Active Substance: BEVACIZUMAB-AWWB
     Dosage: UNK (2X 100MG VIALS), DOSE ORDERED: 1000MG (2X 400MG VIALS, 2X 100MG VIALS)
     Route: 065

REACTIONS (1)
  - Hospice care [Unknown]

NARRATIVE: CASE EVENT DATE: 20251027
